FAERS Safety Report 10167304 (Version 1)
Quarter: 2014Q2

REPORT INFORMATION
  Report Type: Spontaneous
  Country: US (occurrence: US)
  Receive Date: 20140512
  Receipt Date: 20140512
  Transmission Date: 20141212
  Serious: No
  Sender: FDA-Public Use
  Company Number: US-PFIZER INC-2014128515

PATIENT
  Age: 63 Year
  Sex: Male

DRUGS (6)
  1. LOPID [Suspect]
     Dosage: UNK
  2. FLECAINIDE [Suspect]
     Dosage: UNK
  3. PRINIVIL [Suspect]
     Dosage: UNK
  4. CRESTOR [Suspect]
     Dosage: UNK
  5. IODINE [Suspect]
     Dosage: UNK
  6. TETANUS [Suspect]
     Dosage: UNK

REACTIONS (1)
  - Drug hypersensitivity [Unknown]
